FAERS Safety Report 6511661-5 (Version None)
Quarter: 2009Q4

REPORT INFORMATION
  Report Type: 
  Country: None (occurrence: None)
  Receive Date: 20091222
  Receipt Date: 20090507
  Transmission Date: 20100525
  Serious: No
  Sender: FDA-Public Use
  Company Number: US-ASTRAZENECA-2009UW11647

PATIENT
  Age: 81 Year
  Sex: Female
  Weight: 66.2 kg

DRUGS (6)
  1. CRESTOR [Suspect]
     Indication: BLOOD CHOLESTEROL INCREASED
     Route: 048
     Dates: start: 20090407
  2. CORGARD [Concomitant]
  3. HYDROCHLOROTHIAZIDE [Concomitant]
  4. VITAMIN FOR EYES [Concomitant]
  5. AVASTIN [Concomitant]
     Indication: MACULAR DEGENERATION
  6. ASPIRIN [Concomitant]

REACTIONS (2)
  - INCORRECT DOSE ADMINISTERED [None]
  - PAIN IN EXTREMITY [None]
